FAERS Safety Report 20091012 (Version 2)
Quarter: 2021Q4

REPORT INFORMATION
  Report Type: Spontaneous
  Country: US (occurrence: None)
  Receive Date: 20211119
  Receipt Date: 20211126
  Transmission Date: 20220303
  Serious: Yes (Death, Life-Threatening, Hospitalization, Other)
  Sender: FDA-Public Use
  Company Number: US-ROCHE-2954579

PATIENT
  Age: 72 Year
  Sex: Male
  Weight: 105 kg

DRUGS (19)
  1. ACTEMRA [Suspect]
     Active Substance: TOCILIZUMAB
     Indication: COVID-19
     Dosage: 8MG/KG
     Route: 042
     Dates: start: 20211031, end: 20211031
  2. ACETAMINOPHEN [Concomitant]
     Active Substance: ACETAMINOPHEN
     Dates: start: 20211030, end: 20211107
  3. ACETYLCYSTEINE [Concomitant]
     Active Substance: ACETYLCYSTEINE
     Dates: start: 20211101, end: 20211101
  4. ALBUTEROL [Concomitant]
     Active Substance: ALBUTEROL
     Dates: start: 20211101, end: 20211101
  5. ASPIRIN [Concomitant]
     Active Substance: ASPIRIN
     Dates: start: 20211030
  6. BENZONATATE [Concomitant]
     Active Substance: BENZONATATE
     Dates: start: 20211031, end: 20211031
  7. DEXAMETHASONE [Concomitant]
     Active Substance: DEXAMETHASONE
  8. ENOXAPARIN [Concomitant]
     Active Substance: ENOXAPARIN
     Dates: start: 20211031
  9. FAMOTIDINE [Concomitant]
     Active Substance: FAMOTIDINE
     Dates: start: 20211105
  10. FENTANYL [Concomitant]
     Active Substance: FENTANYL
     Dates: start: 20211103, end: 20211105
  11. FUROSEMIDE [Concomitant]
     Active Substance: FUROSEMIDE
     Dates: start: 20211031, end: 20211031
  12. HYDRALAZINE [Concomitant]
     Active Substance: HYDRALAZINE HYDROCHLORIDE
     Dates: start: 20211102, end: 20211103
  13. HYDROMORPHONE [Concomitant]
     Active Substance: HYDROMORPHONE
     Dates: start: 20211105
  14. LISINOPRIL [Concomitant]
     Active Substance: LISINOPRIL
  15. VECURONIUM [Concomitant]
     Active Substance: VECURONIUM BROMIDE
     Dates: start: 20211103, end: 20211106
  16. GUAIFENESIN [Concomitant]
     Active Substance: GUAIFENESIN
     Dates: start: 20211031, end: 20211031
  17. ETOMIDATE [Concomitant]
     Active Substance: ETOMIDATE
     Dates: start: 20211103, end: 20211103
  18. MELATONIN [Concomitant]
     Active Substance: MELATONIN
     Dates: start: 20211031, end: 20211031
  19. MIDAZOLAM [Concomitant]
     Active Substance: MIDAZOLAM
     Dates: start: 20211103, end: 20211107

REACTIONS (11)
  - Shock [Fatal]
  - Fibrin D dimer increased [Not Recovered/Not Resolved]
  - Off label use [Unknown]
  - Acute respiratory failure [Unknown]
  - COVID-19 pneumonia [Unknown]
  - Acute respiratory distress syndrome [Unknown]
  - Pneumonia [Unknown]
  - Bronchiectasis [Unknown]
  - Pleural effusion [Unknown]
  - Pyrexia [Unknown]
  - Superinfection bacterial [Unknown]

NARRATIVE: CASE EVENT DATE: 20211031
